FAERS Safety Report 6176589-1 (Version None)
Quarter: 2009Q2

REPORT INFORMATION
  Report Type: 
  Country: None (occurrence: None)
  Receive Date: 20090501
  Receipt Date: 20090422
  Transmission Date: 20091009
  Serious: Yes (Other)
  Sender: FDA-Public Use
  Company Number: BE-ELI_LILLY_AND_COMPANY-BE200904004706

PATIENT
  Age: 50 Year
  Sex: Male

DRUGS (1)
  1. BYETTA [Suspect]
     Dosage: 10 UG, DAILY (1/D)
     Route: 065

REACTIONS (4)
  - AGGRESSION [None]
  - DEPRESSION [None]
  - FOOD AVERSION [None]
  - WEIGHT DECREASED [None]
